FAERS Safety Report 8415566-4 (Version None)
Quarter: 2012Q2

REPORT INFORMATION
  Report Type: 
  Country: None (occurrence: None)
  Receive Date: 20120530
  Receipt Date: 20120518
  Transmission Date: 20120825
  Serious: Yes (Other)
  Sender: FDA-Public Use
  Company Number: LOC-00993

PATIENT
  Age: 77 Year
  Sex: Male

DRUGS (11)
  1. DEXAMETHASONE [Concomitant]
  2. LOCOID LIPOCREAM [Suspect]
     Indication: RASH
     Dosage: APPLY A SMALL AMOUNT TO TIP OF PENIS, ONCE, TOPICAL
     Route: 061
     Dates: start: 20111201, end: 20111201
  3. ELETONE CREAM [Concomitant]
  4. BABY POWDER [Concomitant]
  5. NIZORAL [Concomitant]
  6. AQUAPHOR [Concomitant]
  7. GOLD BOND POWDER [Concomitant]
  8. VANICREAM [Concomitant]
  9. DIFLUCAN [Concomitant]
  10. 2.5% HYDROCORTISONE [Concomitant]
  11. ALCORTIN [Concomitant]

REACTIONS (4)
  - APPLICATION SITE BLEEDING [None]
  - APPLICATION SITE SWELLING [None]
  - APPLICATION SITE PAIN [None]
  - APPLICATION SITE ERYTHEMA [None]
